FAERS Safety Report 6510751-0 (Version None)
Quarter: 2009Q4

REPORT INFORMATION
  Report Type: 
  Country: None (occurrence: None)
  Receive Date: 20091217
  Receipt Date: 20091210
  Transmission Date: 20100525
  Serious: Yes (Death)
  Sender: FDA-Public Use
  Company Number: METH-NOVEMBER-01(09)

PATIENT
  Age: 65 Year
  Sex: Female

DRUGS (1)
  1. METHOTREXATE [Suspect]
     Indication: PSORIASIS
     Dosage: 7.5MG/WEEK, ORAL
     Route: 048

REACTIONS (5)
  - CHOLELITHIASIS [None]
  - GALLBLADDER CANCER [None]
  - GALLBLADDER ENLARGEMENT [None]
  - METASTASES TO LIVER [None]
  - METASTASES TO PERITONEUM [None]
